FAERS Safety Report 5988662-9 (Version None)
Quarter: 2008Q4

REPORT INFORMATION
  Report Type: 
  Country: None (occurrence: None)
  Receive Date: 20081210
  Receipt Date: 20081201
  Transmission Date: 20090506
  Serious: Yes (Life-Threatening)
  Sender: FDA-Public Use
  Company Number: FR-PFIZER INC-2008150498

PATIENT

DRUGS (6)
  1. AMLOD [Suspect]
     Indication: HYPERTENSION
     Dosage: 5 MG, 1X/DAY
     Route: 048
     Dates: start: 20050101, end: 20080921
  2. LAMIVUDINE [Suspect]
     Indication: HIV ANTIGEN POSITIVE
     Dosage: 300 MG, 1X/DAY
     Route: 048
     Dates: start: 20070101, end: 20080921
  3. HEXAQUINE [Suspect]
     Indication: MYALGIA
     Dosage: 1 DF, AS NEEDED
     Route: 048
     Dates: start: 20080201, end: 20080921
  4. AUGMENTIN '125' [Suspect]
     Indication: PYREXIA
     Dosage: 2 DF, 2X/DAY
     Route: 048
     Dates: start: 20080915, end: 20080921
  5. RALTEGRAVIR [Concomitant]
     Indication: HIV ANTIGEN POSITIVE
     Dosage: 800 MG, 1X/DAY
     Route: 048
     Dates: start: 20080301
  6. EFAVIRENZ [Concomitant]
     Indication: HIV ANTIGEN POSITIVE
     Dosage: 600 MG, 1X/DAY
     Route: 048
     Dates: start: 20070101

REACTIONS (1)
  - BONE MARROW FAILURE [None]
